FAERS Safety Report 6979122-7 (Version None)
Quarter: 2010Q3

REPORT INFORMATION
  Report Type: 
  Country: None (occurrence: None)
  Receive Date: 20100913
  Receipt Date: 20100902
  Transmission Date: 20110219
  Serious: Yes (Hospitalization, Other)
  Sender: FDA-Public Use
  Company Number: PHHY2010AU36989

PATIENT
  Sex: Male

DRUGS (4)
  1. CLOZARIL [Suspect]
     Dosage: 550 MG
     Dates: start: 19960426
  2. CLOZARIL [Suspect]
     Dosage: 550 MG
     Dates: start: 20100528
  3. CLOZARIL [Suspect]
     Dosage: 700 MG
     Route: 048
  4. CLOZARIL [Suspect]
     Dosage: 725 MG
     Route: 048
     Dates: end: 20100618

REACTIONS (13)
  - ABNORMAL BEHAVIOUR [None]
  - AGITATION [None]
  - ANTIPSYCHOTIC DRUG LEVEL INCREASED [None]
  - CONFUSIONAL STATE [None]
  - CONVULSION [None]
  - DRUG DOSE OMISSION [None]
  - HYPONATRAEMIA [None]
  - METABOLIC ACIDOSIS [None]
  - POLYDIPSIA [None]
  - REGURGITATION [None]
  - SCHIZOPHRENIA [None]
  - TREATMENT NONCOMPLIANCE [None]
  - VOMITING [None]
